FAERS Safety Report 16423876 (Version 2)
Quarter: 2019Q4

REPORT INFORMATION
  Report Type: Spontaneous
  Country: US (occurrence: US)
  Receive Date: 20190613
  Receipt Date: 20191030
  Transmission Date: 20200122
  Serious: Yes (Death, Hospitalization)
  Sender: FDA-Public Use
  Company Number: US-SUN PHARMACEUTICAL INDUSTRIES LTD-2019R1-210278

PATIENT
  Age: 78 Year
  Sex: Male

DRUGS (1)
  1. METFORMIN [Suspect]
     Active Substance: METFORMIN HYDROCHLORIDE
     Indication: PRODUCT USED FOR UNKNOWN INDICATION
     Dosage: 500 MILLIGRAM, BID
     Route: 065

REACTIONS (6)
  - Sepsis [Fatal]
  - Respiratory distress [Unknown]
  - Multiple organ dysfunction syndrome [Fatal]
  - Contraindicated product administered [Unknown]
  - Acute kidney injury [Not Recovered/Not Resolved]
  - Lactic acidosis [Unknown]
